FAERS Safety Report 5729051-1 (Version None)
Quarter: 2008Q2

REPORT INFORMATION
  Report Type: 
  Country: None (occurrence: None)
  Receive Date: 20080430
  Receipt Date: 20080418
  Transmission Date: 20081010
  Serious: Yes (Life-Threatening)
  Sender: FDA-Public Use
  Company Number: GXKR2008IL03761

PATIENT
  Age: 59 Year
  Sex: Male

DRUGS (5)
  1. PROPOFOL [Suspect]
     Indication: ANAESTHESIA
     Dosage: 200 MG, INTRAVENOUS
     Route: 042
  2. SUCCINYLCHOLINE CHLORIDE [Suspect]
     Indication: MUSCLE RELAXANT THERAPY
     Dosage: 200 MG, INTRAVENOUS; 40 MG, INTRAVENOUS
     Route: 042
  3. EPHEDRINE (NGX)(EPHEDRINE) UNKNOWN [Suspect]
     Dosage: 5 MG, INTRAVENOUS; 10 MG, INTRAVENOUS
     Route: 042
  4. REMIFENTANIL(REMIFENTANIL) [Suspect]
     Indication: ANAESTHESIA
     Dosage: 5 UG, INTRAVENOUS
  5. ISOFLURANE [Concomitant]

REACTIONS (8)
  - ARTERIOSPASM CORONARY [None]
  - BLOOD PRESSURE IMMEASURABLE [None]
  - CARDIAC ARREST [None]
  - ELECTROCARDIOGRAM ST SEGMENT ELEVATION [None]
  - PULSE ABSENT [None]
  - RESPIRATORY ACIDOSIS [None]
  - SINUS BRADYCARDIA [None]
  - VENTRICULAR TACHYCARDIA [None]
